FAERS Safety Report 18901511 (Version 1)
Quarter: 2021Q1

REPORT INFORMATION
  Report Type: Spontaneous
  Country: GB (occurrence: GB)
  Receive Date: 20210217
  Receipt Date: 20210217
  Transmission Date: 20210420
  Serious: Yes (Other)
  Sender: FDA-Public Use
  Company Number: GB-AUROBINDO-AUR-APL-2021-006294

PATIENT
  Age: 52 Year
  Sex: Female

DRUGS (4)
  1. PARACETAMOL [Suspect]
     Active Substance: ACETAMINOPHEN
     Indication: PRODUCT USED FOR UNKNOWN INDICATION
     Dosage: UNK
     Route: 065
  2. OESTROGEL [Concomitant]
     Active Substance: ESTRADIOL
     Indication: MENOPAUSE
     Dosage: UNK
     Route: 065
     Dates: start: 20200713
  3. INFLUENZA VIRUS [Concomitant]
     Active Substance: INFLUENZA VIRUS VACCINE
     Indication: PRODUCT USED FOR UNKNOWN INDICATION
     Dosage: UNK
     Route: 065
     Dates: start: 202010
  4. ASTRAZENECA COVID?19 VACCINE [Suspect]
     Active Substance: AZD-1222
     Indication: PRODUCT USED FOR UNKNOWN INDICATION
     Dosage: UNK
     Route: 065
     Dates: start: 20210206

REACTIONS (9)
  - Headache [Not Recovered/Not Resolved]
  - Chills [Recovered/Resolved]
  - Decreased appetite [Not Recovered/Not Resolved]
  - Dizziness [Unknown]
  - Tenderness [Not Recovered/Not Resolved]
  - Malaise [Recovered/Resolved]
  - Myalgia [Recovering/Resolving]
  - Fatigue [Recovering/Resolving]
  - Arthralgia [Recovered/Resolved]
